FAERS Safety Report 7498365-X (Version None)
Quarter: 2011Q2

REPORT INFORMATION
  Report Type: 
  Country: None (occurrence: None)
  Receive Date: 20110524
  Receipt Date: 20101221
  Transmission Date: 20111010
  Serious: Yes (Hospitalization, Other)
  Sender: FDA-Public Use
  Company Number: US-BAYER-201030412NA

PATIENT
  Age: 24 Year
  Sex: Female
  Weight: 77 kg

DRUGS (9)
  1. VICODIN [Concomitant]
     Dosage: UNK UNK, PRN
     Route: 048
  2. ALBUTEROL SULFATE AUTOHALER [Concomitant]
  3. YASMIN [Suspect]
     Indication: PRODUCT USED FOR UNKNOWN INDICATION
     Route: 048
     Dates: start: 20060101
  4. ACIPHEX [Concomitant]
     Route: 048
  5. YAZ [Suspect]
     Indication: PRODUCT USED FOR UNKNOWN INDICATION
     Route: 048
     Dates: start: 20060101
  6. MARIJUANA [Concomitant]
  7. ZANTAC [Concomitant]
  8. XANAX [Concomitant]
     Dosage: UNK UNK, PRN
     Route: 048
  9. OMEPRAZOLE [Concomitant]

REACTIONS (8)
  - ABDOMINAL TENDERNESS [None]
  - CHOLECYSTITIS CHRONIC [None]
  - CHOLECYSTITIS ACUTE [None]
  - GASTRITIS [None]
  - GALLBLADDER INJURY [None]
  - VOMITING [None]
  - CHOLELITHIASIS [None]
  - ABDOMINAL PAIN [None]
